FAERS Safety Report 4771603-X (Version None)
Quarter: 2005Q3

REPORT INFORMATION
  Report Type: 
  Country: None (occurrence: None)
  Receive Date: 20050913
  Receipt Date: 20050913
  Transmission Date: 20060218
  Serious: Yes (Hospitalization)
  Sender: FDA-Public Use
  Company Number: None

PATIENT
  Sex: Male
  Weight: 64 kg

DRUGS (4)
  1. ERBITUX [Suspect]
     Dosage: SEE IMAGE
     Dates: start: 20050906
  2. CETUXIMAB [Suspect]
     Dosage: SEE IMAGE
     Dates: start: 20050906
  3. CISPLATIN [Suspect]
     Dosage: SEE IMAGE
     Dates: start: 20050906
  4. RADIATION [Suspect]
     Dates: start: 20050906

REACTIONS (3)
  - DEHYDRATION [None]
  - MUCOSAL INFLAMMATION [None]
  - STOMATITIS [None]
